FAERS Safety Report 4552174-X (Version None)
Quarter: 2004Q4

REPORT INFORMATION
  Report Type: 
  Country: None (occurrence: None)
  Receive Date: 20041217
  Receipt Date: 20040806
  Transmission Date: 20050328
  Serious: No
  Sender: FDA-Public Use
  Company Number: 2004-BP-06062BP

PATIENT
  Age: 77 Year
  Sex: Female

DRUGS (13)
  1. SPIRIVA [Suspect]
     Indication: CHRONIC OBSTRUCTIVE AIRWAYS DISEASE
     Dosage: 18 MCG (18 MCG), IH
     Dates: start: 20040722, end: 20040722
  2. XOPENEX [Concomitant]
  3. OCCUVITE [Concomitant]
  4. NORVASC [Concomitant]
  5. ADVAIR DISKUS (SERETIDE MITE) [Concomitant]
  6. K-DUR 10 [Concomitant]
  7. PRAVACHOL [Concomitant]
  8. TOPROL-XL [Concomitant]
  9. PLAVIX [Concomitant]
  10. ASA ENTERIC COATED (ACETYLSALICYLIC ACID) [Concomitant]
  11. VALIUM [Concomitant]
  12. NTG (GLYCERYL TRINITRATE) [Concomitant]
  13. LASIX [Concomitant]

REACTIONS (2)
  - RASH PRURITIC [None]
  - SKIN DISCOLOURATION [None]
